FAERS Safety Report 19094302 (Version 1)
Quarter: 2021Q2

REPORT INFORMATION
  Report Type: Spontaneous
  Country: CN (occurrence: CN)
  Receive Date: 20210405
  Receipt Date: 20210405
  Transmission Date: 20210717
  Serious: Yes (Hospitalization, Other)
  Sender: FDA-Public Use
  Company Number: CN-PFIZER INC-2021351216

PATIENT
  Age: 68 Year
  Sex: Female
  Weight: 55 kg

DRUGS (7)
  1. SODIUM CHLORIDE 0.9% [Concomitant]
     Active Substance: SODIUM CHLORIDE
     Dosage: 500.000 ML, 1X/DAY
     Route: 041
     Dates: start: 20210101, end: 20210101
  2. AVASTIN [Suspect]
     Active Substance: BEVACIZUMAB
     Indication: ENDOMETRIAL ADENOCARCINOMA
     Dosage: 400.000 MG, 1X/DAY
     Route: 041
     Dates: start: 20210101, end: 20210101
  3. ANZATAX (PACLITAXEL) [Suspect]
     Active Substance: PACLITAXEL
     Dosage: 240.000 MG, 1X/DAY
     Route: 041
     Dates: start: 20210101, end: 20210101
  4. SODIUM CHLORIDE 0.9% [Concomitant]
     Active Substance: SODIUM CHLORIDE
     Indication: ENDOMETRIAL ADENOCARCINOMA
     Dosage: 500.000 ML, 1X/DAY
     Route: 041
     Dates: start: 20210101, end: 20210101
  5. ANZATAX (PACLITAXEL) [Suspect]
     Active Substance: PACLITAXEL
     Indication: ENDOMETRIAL ADENOCARCINOMA
     Dosage: 30.000 MG, 1X/DAY
     Route: 041
     Dates: start: 20210101, end: 20210101
  6. GLUCOSE [Concomitant]
     Active Substance: DEXTROSE
     Indication: ENDOMETRIAL ADENOCARCINOMA
     Dosage: 500.000 ML, 1X/DAY
     Route: 041
     Dates: start: 20210101, end: 20210101
  7. CARBOPLATIN. [Suspect]
     Active Substance: CARBOPLATIN
     Indication: ENDOMETRIAL ADENOCARCINOMA
     Dosage: 0.550 G, 1X/DAY
     Route: 041
     Dates: start: 20210101, end: 20210101

REACTIONS (4)
  - Vomiting [Recovering/Resolving]
  - Hyponatraemia [Unknown]
  - Myelosuppression [Recovering/Resolving]
  - Nausea [Recovering/Resolving]

NARRATIVE: CASE EVENT DATE: 202101
